FAERS Safety Report 8077818-X (Version None)
Quarter: 2012Q1

REPORT INFORMATION
  Report Type: 
  Country: None (occurrence: None)
  Receive Date: 20120127
  Receipt Date: 20120124
  Transmission Date: 20120608
  Serious: No
  Sender: FDA-Public Use
  Company Number: US-PFIZER INC-2012020205

PATIENT
  Age: 46 Year
  Sex: Female
  Weight: 63.492 kg

DRUGS (1)
  1. EFFEXOR XR [Suspect]
     Indication: DEPRESSION
     Dosage: 37.5 MG, 1X/DAY
     Dates: start: 20111201

REACTIONS (4)
  - RASH [None]
  - NASOPHARYNGITIS [None]
  - SEXUAL DYSFUNCTION [None]
  - INSOMNIA [None]
